FAERS Safety Report 4720753-2 (Version None)
Quarter: 2005Q3

REPORT INFORMATION
  Report Type: 
  Country: None (occurrence: None)
  Receive Date: 20050719
  Receipt Date: 20050706
  Transmission Date: 20060218
  Serious: Yes (Other)
  Sender: FDA-Public Use
  Company Number: HQWYE302807JUN05

PATIENT
  Age: 26 Year
  Sex: Female
  Weight: 72.64 kg

DRUGS (4)
  1. EFFEXOR (VENALFAXINE HYDROCHLORIDE, TABLET) [Suspect]
     Indication: MIGRAINE PROPHYLAXIS
     Dosage: 150 MG 1X PER 1 DAY, ORAL; 75 MG 1X PER DAY, ORAL; 37.5 MG 1X PER 1 DAY, ORAL
     Route: 048
     Dates: start: 20030917, end: 20050420
  2. EFFEXOR (VENALFAXINE HYDROCHLORIDE, TABLET) [Suspect]
     Indication: MIGRAINE PROPHYLAXIS
     Dosage: 150 MG 1X PER 1 DAY, ORAL; 75 MG 1X PER DAY, ORAL; 37.5 MG 1X PER 1 DAY, ORAL
     Route: 048
     Dates: start: 20050421, end: 20050518
  3. EFFEXOR (VENALFAXINE HYDROCHLORIDE, TABLET) [Suspect]
     Indication: MIGRAINE PROPHYLAXIS
     Dosage: 150 MG 1X PER 1 DAY, ORAL; 75 MG 1X PER DAY, ORAL; 37.5 MG 1X PER 1 DAY, ORAL
     Route: 048
     Dates: start: 20050519, end: 20050525
  4. RELPAX (ELETRIPTAN HYDROBROMIDE) [Concomitant]

REACTIONS (15)
  - CONDITION AGGRAVATED [None]
  - DIARRHOEA [None]
  - DRUG DEPENDENCE [None]
  - DRUG INEFFECTIVE [None]
  - DRUG WITHDRAWAL SYNDROME [None]
  - HYPOAESTHESIA [None]
  - INSOMNIA [None]
  - LOSS OF LIBIDO [None]
  - MENTAL IMPAIRMENT [None]
  - MIGRAINE [None]
  - NAUSEA [None]
  - PARAESTHESIA [None]
  - SOMNOLENCE [None]
  - VOMITING [None]
  - WEIGHT INCREASED [None]
